FAERS Safety Report 11838934 (Version 3)
Quarter: 2016Q1

REPORT INFORMATION
  Report Type: Report from Study
  Country: US (occurrence: US)
  Receive Date: 20151216
  Receipt Date: 20160323
  Transmission Date: 20160525
  Serious: No
  Sender: FDA-Public Use
  Company Number: US-AMGEN-USASL2015131936

PATIENT
  Age: 15 Year
  Sex: Male

DRUGS (3)
  1. METHOTREXATE [Concomitant]
     Active Substance: METHOTREXATE
     Indication: ARTHRITIS
     Dosage: 20 MG, QWK
     Route: 058
     Dates: start: 20100713
  2. FOLIC ACID. [Concomitant]
     Active Substance: FOLIC ACID
     Indication: ARTHRITIS
     Dosage: 1 MG, DAILY
     Route: 048
     Dates: start: 20100713
  3. ENBREL [Suspect]
     Active Substance: ETANERCEPT
     Indication: JUVENILE IDIOPATHIC ARTHRITIS
     Dosage: 0.98 ML, WEEKLY
     Route: 058
     Dates: start: 20150917, end: 20151221

REACTIONS (14)
  - Depressed mood [Recovered/Resolved]
  - Fatigue [Unknown]
  - Personality change [Unknown]
  - Impatience [Unknown]
  - Asthenia [Recovered/Resolved]
  - Mood swings [Recovered/Resolved]
  - Peripheral swelling [Unknown]
  - Hypersomnia [Unknown]
  - Urinary tract infection [Unknown]
  - Respiratory tract congestion [Unknown]
  - Joint effusion [Unknown]
  - Irritability [Unknown]
  - Injection site pain [Unknown]
  - Upper respiratory tract infection [Recovered/Resolved]

NARRATIVE: CASE EVENT DATE: 2015
